FAERS Safety Report 23481589 (Version 1)
Quarter: 2024Q1

REPORT INFORMATION
  Report Type: Spontaneous
  Country: US (occurrence: None)
  Receive Date: 20240202
  Receipt Date: 20240202
  Transmission Date: 20240410
  Serious: Yes (Other)
  Sender: FDA-Public Use
  Company Number: None

PATIENT
  Age: 72 Year
  Sex: Female
  Weight: 78.3 kg

DRUGS (7)
  1. PAXLOVID [Suspect]
     Active Substance: NIRMATRELVIR\RITONAVIR
     Indication: COVID-19
     Dosage: FREQUENCY : TWICE A DAY;?
     Route: 048
     Dates: start: 20231109, end: 20231112
  2. Vitamin D and K [Concomitant]
  3. Complex B Vitamins [Concomitant]
  4. Turmeric with ginger [Concomitant]
  5. FISH OIL [Concomitant]
     Active Substance: FISH OIL
  6. QUERCETIN [Concomitant]
     Active Substance: QUERCETIN
  7. VITAMINS [Concomitant]
     Active Substance: VITAMINS

REACTIONS (4)
  - Dysgeusia [None]
  - Throat tightness [None]
  - Aphonia [None]
  - Gastrointestinal disorder [None]

NARRATIVE: CASE EVENT DATE: 20231112
